FAERS Safety Report 19275240 (Version 42)
Quarter: 2024Q3

REPORT INFORMATION
  Report Type: Spontaneous
  Country: CA (occurrence: CA)
  Receive Date: 20210519
  Receipt Date: 20240904
  Transmission Date: 20241017
  Serious: Yes (Death, Life-Threatening, Hospitalization, Other)
  Sender: SANOFI AVENTIS
  Company Number: CA-SA-SAC20210518000252

PATIENT
  Age: 65 Year
  Sex: Male

DRUGS (225)
  1. INSULIN GLARGINE [Suspect]
     Active Substance: INSULIN GLARGINE
     Indication: Product used for unknown indication
     Dosage: 1 DF, QD
     Route: 058
  2. FLOMAX [Suspect]
     Active Substance: TAMSULOSIN HYDROCHLORIDE
     Indication: Product used for unknown indication
     Dosage: 1 DF, QD
     Route: 065
  3. FLOMAX [Suspect]
     Active Substance: TAMSULOSIN HYDROCHLORIDE
     Dosage: 1 DF, QW
     Route: 065
  4. FLOMAX [Suspect]
     Active Substance: TAMSULOSIN HYDROCHLORIDE
     Dosage: 100 MG, QW
     Route: 065
  5. FLOMAX [Suspect]
     Active Substance: TAMSULOSIN HYDROCHLORIDE
     Dosage: 100 MG, QD
     Route: 065
  6. FLOMAX [Suspect]
     Active Substance: TAMSULOSIN HYDROCHLORIDE
     Dosage: RESPIRATORY 1 DF, QD (INHALATION)
     Route: 055
  7. ALENDRONATE SODIUM [Suspect]
     Active Substance: ALENDRONATE SODIUM
     Indication: Product used for unknown indication
     Dosage: 70 MG, QW
     Route: 065
  8. ALENDRONATE SODIUM [Suspect]
     Active Substance: ALENDRONATE SODIUM
     Dosage: 70 MG, QW
  9. ALENDRONATE SODIUM [Suspect]
     Active Substance: ALENDRONATE SODIUM
     Dosage: 70 MG, QD
     Route: 065
  10. ALENDRONATE SODIUM [Suspect]
     Active Substance: ALENDRONATE SODIUM
     Dosage: 100 MG, QD
     Route: 065
  11. ALENDRONATE SODIUM [Suspect]
     Active Substance: ALENDRONATE SODIUM
     Dosage: 1 DF, Q3W
     Route: 065
  12. ALENDRONATE SODIUM [Suspect]
     Active Substance: ALENDRONATE SODIUM
     Dosage: 1 DF, QW
     Route: 065
  13. ALENDRONATE SODIUM [Suspect]
     Active Substance: ALENDRONATE SODIUM
     Dosage: 1 DF, CYCLICAL
  14. ALENDRONATE SODIUM [Suspect]
     Active Substance: ALENDRONATE SODIUM
     Dosage: UNK
  15. ALENDRONATE SODIUM [Suspect]
     Active Substance: ALENDRONATE SODIUM
     Dosage: 1 DF
  16. CALCIUM CARBONATE [Suspect]
     Active Substance: CALCIUM CARBONATE
     Indication: Product used for unknown indication
     Dosage: 1 DF, QD
     Route: 065
  17. CALCIUM CARBONATE [Suspect]
     Active Substance: CALCIUM CARBONATE
     Dosage: 500 MG, QD
  18. CALCIUM CARBONATE [Suspect]
     Active Substance: CALCIUM CARBONATE
     Dosage: 2 DF, QD
  19. CALCIUM CARBONATE [Suspect]
     Active Substance: CALCIUM CARBONATE
     Dosage: UNK, QD
  20. CALCIUM CARBONATE [Suspect]
     Active Substance: CALCIUM CARBONATE
     Dosage: 1 DF, QD
     Route: 065
  21. CALCIUM CARBONATE [Suspect]
     Active Substance: CALCIUM CARBONATE
     Dosage: 500 MG, QD
  22. CALCIUM CARBONATE [Suspect]
     Active Substance: CALCIUM CARBONATE
     Dosage: 1 DF, QD
     Route: 065
  23. CALCIUM CARBONATE [Suspect]
     Active Substance: CALCIUM CARBONATE
     Dosage: 2 DF, QD
  24. CANDESARTAN CILEXETIL [Suspect]
     Active Substance: CANDESARTAN CILEXETIL
     Indication: Product used for unknown indication
     Dosage: 1 DF, QD
     Route: 048
  25. CANDESARTAN CILEXETIL [Suspect]
     Active Substance: CANDESARTAN CILEXETIL
     Dosage: UNK, QD
     Route: 048
  26. CANDESARTAN CILEXETIL [Suspect]
     Active Substance: CANDESARTAN CILEXETIL
     Dosage: 32 MG, QD
     Route: 048
  27. CANDESARTAN CILEXETIL [Suspect]
     Active Substance: CANDESARTAN CILEXETIL
     Dosage: 500 MG
  28. CANDESARTAN CILEXETIL [Suspect]
     Active Substance: CANDESARTAN CILEXETIL
     Dosage: UNK UNK, QD
  29. CANDESARTAN CILEXETIL [Suspect]
     Active Substance: CANDESARTAN CILEXETIL
     Dosage: 1 DF
  30. CANDESARTAN CILEXETIL [Suspect]
     Active Substance: CANDESARTAN CILEXETIL
     Dosage: UNK UNK, QD
  31. CANDESARTAN CILEXETIL [Suspect]
     Active Substance: CANDESARTAN CILEXETIL
     Dosage: 32 MG, QD
  32. CANDESARTAN CILEXETIL [Suspect]
     Active Substance: CANDESARTAN CILEXETIL
     Dosage: 1 DF, QD
  33. CANDESARTAN CILEXETIL [Suspect]
     Active Substance: CANDESARTAN CILEXETIL
     Dosage: 32 MG, QD
  34. CEFUROXIME [Suspect]
     Active Substance: CEFUROXIME
     Indication: Product used for unknown indication
     Dosage: 2 DF, QD
     Route: 065
  35. CEFUROXIME [Suspect]
     Active Substance: CEFUROXIME
     Dosage: 1 DF, Q12H
     Route: 065
  36. CEFUROXIME [Suspect]
     Active Substance: CEFUROXIME
     Dosage: 4 DF, QD
  37. CEFUROXIME [Suspect]
     Active Substance: CEFUROXIME
     Dosage: 1000 MG
  38. CEFUROXIME [Suspect]
     Active Substance: CEFUROXIME
     Dosage: 500 MG, Q12H
     Route: 065
  39. CEFUROXIME [Suspect]
     Active Substance: CEFUROXIME
     Dosage: 1 DF, QD
     Route: 065
  40. CEFUROXIME [Suspect]
     Active Substance: CEFUROXIME
     Dosage: UNK UNK, Q12H
     Route: 065
  41. CEFUROXIME [Suspect]
     Active Substance: CEFUROXIME
     Dosage: 2 DF, Q12H
  42. CEFUROXIME [Suspect]
     Active Substance: CEFUROXIME
     Dosage: 2 DF
  43. CEFUROXIME [Suspect]
     Active Substance: CEFUROXIME
     Dosage: 500 MG
  44. CEFUROXIME [Suspect]
     Active Substance: CEFUROXIME
     Dosage: 100 MG
  45. CEFUROXIME [Suspect]
     Active Substance: CEFUROXIME
     Dosage: 4 DF
  46. CEFUROXIME [Suspect]
     Active Substance: CEFUROXIME
     Dosage: UNK, QD
  47. CEFUROXIME [Suspect]
     Active Substance: CEFUROXIME
     Dosage: 500 MG, OTHER (0.5 DAY)
  48. INSULIN ASPART [Suspect]
     Active Substance: INSULIN ASPART
     Indication: Product used for unknown indication
     Dosage: UNK, QD
     Route: 058
  49. ERGOCALCIFEROL [Suspect]
     Active Substance: ERGOCALCIFEROL
     Indication: Product used for unknown indication
     Dosage: UNK
     Route: 065
  50. PANTOPRAZOLE [Suspect]
     Active Substance: PANTOPRAZOLE
     Indication: Product used for unknown indication
     Dosage: 1 DF, Q12H
     Route: 065
  51. PANTOPRAZOLE [Suspect]
     Active Substance: PANTOPRAZOLE
     Indication: Antineutrophil cytoplasmic antibody positive
     Dosage: 2 DF, QD
  52. PANTOPRAZOLE [Suspect]
     Active Substance: PANTOPRAZOLE
     Indication: Sleep disorder due to a general medical condition
     Dosage: 1 DF, OTHER (0.5 DAY)
  53. PANTOPRAZOLE [Suspect]
     Active Substance: PANTOPRAZOLE
     Indication: Forced expiratory volume decreased
     Dosage: 2 DF, BID
  54. PANTOPRAZOLE [Suspect]
     Active Substance: PANTOPRAZOLE
     Indication: Wheezing
     Dosage: UNK
  55. PANTOPRAZOLE [Suspect]
     Active Substance: PANTOPRAZOLE
     Indication: Neurological symptom
     Dosage: 1 DF, BID
  56. PANTOPRAZOLE [Suspect]
     Active Substance: PANTOPRAZOLE
     Indication: Productive cough
     Dosage: 1 DF
  57. PANTOPRAZOLE [Suspect]
     Active Substance: PANTOPRAZOLE
     Indication: Full blood count abnormal
     Dosage: 4 DF, QD
  58. PANTOPRAZOLE [Suspect]
     Active Substance: PANTOPRAZOLE
     Indication: Respiratory symptom
     Dosage: 4 DF, BID
  59. PANTOPRAZOLE [Suspect]
     Active Substance: PANTOPRAZOLE
     Indication: Anxiety
     Dosage: 2 DF, QD
  60. PANTOPRAZOLE [Suspect]
     Active Substance: PANTOPRAZOLE
     Indication: Haemoptysis
  61. PANTOPRAZOLE [Suspect]
     Active Substance: PANTOPRAZOLE
     Indication: Thrombosis
  62. PANTOPRAZOLE [Suspect]
     Active Substance: PANTOPRAZOLE
     Indication: Dust allergy
  63. PANTOPRAZOLE [Suspect]
     Active Substance: PANTOPRAZOLE
     Indication: Eosinophilic granulomatosis with polyangiitis
  64. PANTOPRAZOLE [Suspect]
     Active Substance: PANTOPRAZOLE
     Indication: Conjunctivitis allergic
  65. PANTOPRAZOLE [Suspect]
     Active Substance: PANTOPRAZOLE
     Indication: Neuritis
  66. PANTOPRAZOLE [Suspect]
     Active Substance: PANTOPRAZOLE
     Indication: Pulmonary fibrosis
  67. PANTOPRAZOLE [Suspect]
     Active Substance: PANTOPRAZOLE
     Indication: Pulmonary vasculitis
  68. PANTOPRAZOLE [Suspect]
     Active Substance: PANTOPRAZOLE
     Indication: Mycotic allergy
  69. PANTOPRAZOLE [Suspect]
     Active Substance: PANTOPRAZOLE
     Indication: Capillaritis
  70. PANTOPRAZOLE [Suspect]
     Active Substance: PANTOPRAZOLE
     Indication: Normochromic normocytic anaemia
  71. PANTOPRAZOLE [Suspect]
     Active Substance: PANTOPRAZOLE
     Indication: Mite allergy
  72. PANTOPRAZOLE [Suspect]
     Active Substance: PANTOPRAZOLE
     Indication: Arteriosclerosis coronary artery
  73. PANTOPRAZOLE [Suspect]
     Active Substance: PANTOPRAZOLE
     Indication: Obstructive airways disorder
  74. PANTOPRAZOLE [Suspect]
     Active Substance: PANTOPRAZOLE
     Indication: Nodule
  75. PANTOPRAZOLE [Suspect]
     Active Substance: PANTOPRAZOLE
     Indication: Total lung capacity
  76. PANTOPRAZOLE [Suspect]
     Active Substance: PANTOPRAZOLE
     Indication: Pulmonary alveolar haemorrhage
  77. PREDNISONE [Suspect]
     Active Substance: PREDNISONE
     Indication: Asthma
     Dosage: 80 MG, QD
     Route: 065
  78. PREDNISONE [Suspect]
     Active Substance: PREDNISONE
     Dosage: 5 MG, QD
     Route: 065
  79. PREDNISONE [Suspect]
     Active Substance: PREDNISONE
     Dosage: 1 DF, QD
     Route: 065
  80. PREDNISONE [Suspect]
     Active Substance: PREDNISONE
     Dosage: 80 MG
  81. PREDNISONE [Suspect]
     Active Substance: PREDNISONE
     Dosage: 50 MG, QD
  82. ALBUTEROL SULFATE [Suspect]
     Active Substance: ALBUTEROL SULFATE
     Indication: Eosinophilic granulomatosis with polyangiitis
     Dosage: 1 DF, QD
     Route: 065
  83. LEVOTHYROXINE SODIUM [Suspect]
     Active Substance: LEVOTHYROXINE SODIUM
     Indication: Product used for unknown indication
     Dosage: UNK
     Route: 065
  84. METFORMIN HYDROCHLORIDE [Suspect]
     Active Substance: METFORMIN HYDROCHLORIDE
     Indication: Product used for unknown indication
     Dosage: UNK UNK, QID
  85. METFORMIN HYDROCHLORIDE [Suspect]
     Active Substance: METFORMIN HYDROCHLORIDE
     Dosage: 500 MG, Q12H
  86. METFORMIN HYDROCHLORIDE [Suspect]
     Active Substance: METFORMIN HYDROCHLORIDE
     Dosage: 2 DF, Q12H
     Route: 065
  87. METFORMIN HYDROCHLORIDE [Suspect]
     Active Substance: METFORMIN HYDROCHLORIDE
     Dosage: 2 DF, QD
     Route: 065
  88. METFORMIN HYDROCHLORIDE [Suspect]
     Active Substance: METFORMIN HYDROCHLORIDE
     Dosage: UNK UNK, EVERY 6 HOURS
     Route: 065
  89. METFORMIN HYDROCHLORIDE [Suspect]
     Active Substance: METFORMIN HYDROCHLORIDE
     Dosage: 4 DF, QD
     Route: 065
  90. METFORMIN HYDROCHLORIDE [Suspect]
     Active Substance: METFORMIN HYDROCHLORIDE
     Dosage: 4 DF, QD
     Route: 065
  91. METFORMIN HYDROCHLORIDE [Suspect]
     Active Substance: METFORMIN HYDROCHLORIDE
     Dosage: 500 MG, BID
     Route: 065
  92. METFORMIN HYDROCHLORIDE [Suspect]
     Active Substance: METFORMIN HYDROCHLORIDE
     Dosage: 1 DF, QD
  93. METFORMIN HYDROCHLORIDE [Suspect]
     Active Substance: METFORMIN HYDROCHLORIDE
     Dosage: UNK, QD
  94. LASIX [Suspect]
     Active Substance: FUROSEMIDE
     Indication: Product used for unknown indication
     Dosage: 1 DF, QD
     Route: 065
  95. LASIX [Suspect]
     Active Substance: FUROSEMIDE
     Indication: Spirometry abnormal
     Dosage: 40 MG, QD
  96. LASIX [Suspect]
     Active Substance: FUROSEMIDE
     Indication: Pulmonary vasculitis
     Dosage: 2 DF, QD
  97. LASIX [Suspect]
     Active Substance: FUROSEMIDE
     Indication: Eosinophilic granulomatosis with polyangiitis
     Dosage: UNK UNK, QD
     Route: 065
  98. LASIX [Suspect]
     Active Substance: FUROSEMIDE
     Indication: Sleep disorder due to a general medical condition
     Dosage: 2 DF
  99. LASIX [Suspect]
     Active Substance: FUROSEMIDE
     Indication: Haemoptysis
     Dosage: 1 DF, QD
  100. LASIX [Suspect]
     Active Substance: FUROSEMIDE
     Indication: Dust allergy
     Dosage: 1 DF, QD
  101. LASIX [Suspect]
     Active Substance: FUROSEMIDE
     Indication: Mycotic allergy
     Dosage: 1 MG, QD
  102. LASIX [Suspect]
     Active Substance: FUROSEMIDE
     Indication: Capillaritis
     Dosage: CYCLICAL
  103. LASIX [Suspect]
     Active Substance: FUROSEMIDE
     Indication: Mite allergy
     Dosage: 1 MG, QD
  104. LASIX [Suspect]
     Active Substance: FUROSEMIDE
     Indication: Productive cough
  105. LASIX [Suspect]
     Active Substance: FUROSEMIDE
     Indication: Hypoxia
  106. LASIX [Suspect]
     Active Substance: FUROSEMIDE
     Indication: Lung disorder
  107. LASIX [Suspect]
     Active Substance: FUROSEMIDE
     Indication: Vasculitis
  108. LASIX [Suspect]
     Active Substance: FUROSEMIDE
     Indication: Anxiety
  109. LASIX [Suspect]
     Active Substance: FUROSEMIDE
     Indication: Obstructive airways disorder
  110. LASIX [Suspect]
     Active Substance: FUROSEMIDE
     Indication: Thrombosis
  111. LASIX [Suspect]
     Active Substance: FUROSEMIDE
     Indication: Hypothyroidism
  112. LASIX [Suspect]
     Active Substance: FUROSEMIDE
     Indication: Pain in extremity
  113. LASIX [Suspect]
     Active Substance: FUROSEMIDE
     Indication: Conjunctivitis allergic
  114. LASIX [Suspect]
     Active Substance: FUROSEMIDE
     Indication: Neuritis
  115. LASIX [Suspect]
     Active Substance: FUROSEMIDE
     Indication: Nodule
  116. LASIX [Suspect]
     Active Substance: FUROSEMIDE
     Indication: Pulmonary embolism
  117. LASIX [Suspect]
     Active Substance: FUROSEMIDE
     Indication: Loss of personal independence in daily activities
  118. LASIX [Suspect]
     Active Substance: FUROSEMIDE
     Indication: Normochromic normocytic anaemia
  119. LASIX [Suspect]
     Active Substance: FUROSEMIDE
     Indication: Neurological symptom
  120. LASIX [Suspect]
     Active Substance: FUROSEMIDE
     Indication: Forced expiratory volume decreased
  121. SULFAMETHOXAZOLE\TRIMETHOPRIM [Suspect]
     Active Substance: SULFAMETHOXAZOLE\TRIMETHOPRIM
     Indication: Prophylaxis
     Dosage: 86 MG, TIW
     Route: 065
  122. BETAMETHASONE DIPROPIONATE [Suspect]
     Active Substance: BETAMETHASONE DIPROPIONATE
     Indication: Product used for unknown indication
     Dosage: UNK
     Route: 065
  123. TAMSULOSIN HYDROCHLORIDE [Suspect]
     Active Substance: TAMSULOSIN HYDROCHLORIDE
     Indication: Product used for unknown indication
     Dosage: 1 DF, QD
     Route: 065
  124. TAMSULOSIN HYDROCHLORIDE [Suspect]
     Active Substance: TAMSULOSIN HYDROCHLORIDE
     Dosage: 100 MG, QD
     Route: 065
  125. SULFAMETHOXAZOLE\TRIMETHOPRIM [Suspect]
     Active Substance: SULFAMETHOXAZOLE\TRIMETHOPRIM
     Dosage: 86 MG
     Route: 065
  126. CEFUROXIME AXETIL [Suspect]
     Active Substance: CEFUROXIME AXETIL
     Indication: Product used for unknown indication
     Dosage: 500 MG, Q12H
     Route: 065
  127. CEFUROXIME AXETIL [Suspect]
     Active Substance: CEFUROXIME AXETIL
     Dosage: 4 DF, QD
  128. CEFUROXIME AXETIL [Suspect]
     Active Substance: CEFUROXIME AXETIL
     Dosage: 500 MG, QD
  129. CEFUROXIME AXETIL [Suspect]
     Active Substance: CEFUROXIME AXETIL
     Dosage: 1 DF, QD
  130. CEFUROXIME AXETIL [Suspect]
     Active Substance: CEFUROXIME AXETIL
     Dosage: 2 DF, QD
  131. CEFUROXIME AXETIL [Suspect]
     Active Substance: CEFUROXIME AXETIL
     Dosage: 500 MG, BID
     Route: 065
  132. CEFUROXIME AXETIL [Suspect]
     Active Substance: CEFUROXIME AXETIL
     Dosage: UNK UNK, BID
     Route: 065
  133. CANDESARTAN [Suspect]
     Active Substance: CANDESARTAN
     Indication: Product used for unknown indication
     Dosage: 1 DF, QD
     Route: 048
  134. CANDESARTAN [Suspect]
     Active Substance: CANDESARTAN
     Dosage: UNK, QD
  135. CANDESARTAN [Suspect]
     Active Substance: CANDESARTAN
     Dosage: 32 MG, QD
     Route: 048
  136. CANDESARTAN [Suspect]
     Active Substance: CANDESARTAN
     Dosage: 500 MG
  137. CANDESARTAN [Suspect]
     Active Substance: CANDESARTAN
     Dosage: 1 DF, QD
     Route: 065
  138. BETAMETHASONE [Suspect]
     Active Substance: BETAMETHASONE\BETAMETHASONE DIPROPIONATE
     Indication: Product used for unknown indication
     Dosage: UNK
     Route: 065
  139. MAGNESIUM OXIDE [Suspect]
     Active Substance: MAGNESIUM OXIDE
     Indication: Product used for unknown indication
     Dosage: 1 DF, Q12H
     Route: 065
  140. MAGNESIUM OXIDE [Suspect]
     Active Substance: MAGNESIUM OXIDE
     Dosage: 840 MG
  141. MAGNESIUM OXIDE [Suspect]
     Active Substance: MAGNESIUM OXIDE
     Dosage: 2 DF, QD
  142. MAGNESIUM OXIDE [Suspect]
     Active Substance: MAGNESIUM OXIDE
     Dosage: 2 DF, QD
     Route: 065
  143. MAGNESIUM OXIDE [Suspect]
     Active Substance: MAGNESIUM OXIDE
     Dosage: 420 MG, BID
  144. MAGNESIUM OXIDE [Suspect]
     Active Substance: MAGNESIUM OXIDE
     Dosage: UNK, QD
  145. MAGNESIUM OXIDE [Suspect]
     Active Substance: MAGNESIUM OXIDE
     Dosage: 1 DF, QD
  146. CEPHALEXIN [Suspect]
     Active Substance: CEPHALEXIN
     Indication: Product used for unknown indication
     Dosage: 1 DF
  147. PANTOPRAZOLE SODIUM [Suspect]
     Active Substance: PANTOPRAZOLE SODIUM
     Indication: Vasculitis
     Dosage: 2 DF, QD
  148. PANTOPRAZOLE SODIUM [Suspect]
     Active Substance: PANTOPRAZOLE SODIUM
     Indication: Hypothyroidism
     Dosage: 40 MG, QD
  149. PANTOPRAZOLE SODIUM [Suspect]
     Active Substance: PANTOPRAZOLE SODIUM
     Dosage: 40 MG, BID
  150. PANTOPRAZOLE SODIUM [Suspect]
     Active Substance: PANTOPRAZOLE SODIUM
     Dosage: 2 DF, BID
  151. PANTOPRAZOLE SODIUM [Suspect]
     Active Substance: PANTOPRAZOLE SODIUM
     Dosage: UNK, BID
  152. PANTOPRAZOLE SODIUM [Suspect]
     Active Substance: PANTOPRAZOLE SODIUM
     Dosage: 2 DF, QD
  153. CLOTRIMAZOLE [Suspect]
     Active Substance: CLOTRIMAZOLE
     Indication: Product used for unknown indication
     Dosage: 1 DF
  154. VITAMIN B [Suspect]
     Active Substance: VITAMIN B
     Dosage: UNK
  155. PENICILLIN G SODIUM [Suspect]
     Active Substance: PENICILLIN G SODIUM
     Dosage: UNK
  156. CANDESARTAN CILEXETIL\HYDROCHLOROTHIAZIDE [Suspect]
     Active Substance: CANDESARTAN CILEXETIL\HYDROCHLOROTHIAZIDE
     Dosage: 1 DF, QD
     Route: 048
  157. CANDESARTAN CILEXETIL\HYDROCHLOROTHIAZIDE [Suspect]
     Active Substance: CANDESARTAN CILEXETIL\HYDROCHLOROTHIAZIDE
     Dosage: 1 DF, QD
     Route: 048
  158. CANDESARTAN CILEXETIL\HYDROCHLOROTHIAZIDE [Suspect]
     Active Substance: CANDESARTAN CILEXETIL\HYDROCHLOROTHIAZIDE
     Dosage: 32 MG, QD
     Route: 048
  159. CEFUROXIME SODIUM [Suspect]
     Active Substance: CEFUROXIME SODIUM
     Dosage: 500 MG
  160. CEFUROXIME SODIUM [Suspect]
     Active Substance: CEFUROXIME SODIUM
     Dosage: 1 DF, QD
  161. CEFUROXIME SODIUM [Suspect]
     Active Substance: CEFUROXIME SODIUM
     Dosage: 500 MG, BID
  162. CEFUROXIME SODIUM [Suspect]
     Active Substance: CEFUROXIME SODIUM
     Dosage: 2 DF, Q12H
  163. CEFUROXIME SODIUM [Suspect]
     Active Substance: CEFUROXIME SODIUM
     Dosage: 1 DF
  164. CEFUROXIME SODIUM [Suspect]
     Active Substance: CEFUROXIME SODIUM
     Dosage: 2 DF, Q12H
  165. SERTRALINE HYDROCHLORIDE [Suspect]
     Active Substance: SERTRALINE HYDROCHLORIDE
     Dosage: UNK
  166. LEVOFLOXACIN [Suspect]
     Active Substance: LEVOFLOXACIN
     Indication: Product used for unknown indication
     Dosage: 3 DF, QD
     Route: 065
  167. LEVOFLOXACIN [Suspect]
     Active Substance: LEVOFLOXACIN
     Dosage: 750 MG, QD
  168. LEVOFLOXACIN [Suspect]
     Active Substance: LEVOFLOXACIN
     Dosage: UNK UNK, TID
     Route: 065
  169. LEVOFLOXACIN [Suspect]
     Active Substance: LEVOFLOXACIN
     Dosage: UNK UNK, QD
     Route: 065
  170. LEVOFLOXACIN [Suspect]
     Active Substance: LEVOFLOXACIN
     Dosage: 1 DF, QD
     Route: 065
  171. LEVOFLOXACIN [Suspect]
     Active Substance: LEVOFLOXACIN
     Dosage: 500 MG
  172. LEVOFLOXACIN [Suspect]
     Active Substance: LEVOFLOXACIN
     Dosage: 750 MG
  173. LEVOFLOXACIN [Suspect]
     Active Substance: LEVOFLOXACIN
     Dosage: 750 MG, QD
  174. LEVOFLOXACIN [Suspect]
     Active Substance: LEVOFLOXACIN
     Dosage: 3 DF, QD
     Route: 065
  175. LEVOFLOXACIN [Suspect]
     Active Substance: LEVOFLOXACIN
     Dosage: 500 MG
  176. LEVOFLOXACIN [Suspect]
     Active Substance: LEVOFLOXACIN
     Dosage: 1 DF, BID
  177. LEVOFLOXACIN [Suspect]
     Active Substance: LEVOFLOXACIN
     Dosage: 1 DF, QD
  178. LEVOFLOXACIN [Suspect]
     Active Substance: LEVOFLOXACIN
     Dosage: UNK, TID
  179. LEVOFLOXACIN [Suspect]
     Active Substance: LEVOFLOXACIN
     Dosage: UNK, TID
  180. LEVOFLOXACIN [Suspect]
     Active Substance: LEVOFLOXACIN
     Dosage: 1 DF, QD
  181. LEVOFLOXACIN [Suspect]
     Active Substance: LEVOFLOXACIN
     Dosage: 1 DF, BID
  182. BUDESONIDE\FORMOTEROL FUMARATE [Suspect]
     Active Substance: BUDESONIDE\FORMOTEROL FUMARATE
     Indication: Product used for unknown indication
     Dosage: UNK
     Route: 065
  183. DOMPERIDONE MALEATE [Suspect]
     Active Substance: DOMPERIDONE MALEATE
     Indication: Product used for unknown indication
     Dosage: 1 DF, QD
     Route: 065
  184. DOMPERIDONE MALEATE [Suspect]
     Active Substance: DOMPERIDONE MALEATE
     Dosage: 1 DF, BID
     Route: 065
  185. DOMPERIDONE MALEATE [Suspect]
     Active Substance: DOMPERIDONE MALEATE
     Dosage: 2 DF, QD
  186. DOMPERIDONE MALEATE [Suspect]
     Active Substance: DOMPERIDONE MALEATE
     Dosage: 10 MG, Q12H
  187. DOMPERIDONE MALEATE [Suspect]
     Active Substance: DOMPERIDONE MALEATE
     Dosage: 1 DF, QD
     Route: 065
  188. DOMPERIDONE MALEATE [Suspect]
     Active Substance: DOMPERIDONE MALEATE
     Dosage: 20 MG, QD
  189. DOMPERIDONE MALEATE [Suspect]
     Active Substance: DOMPERIDONE MALEATE
     Dosage: 10 MG, QD
  190. DOMPERIDONE MALEATE [Suspect]
     Active Substance: DOMPERIDONE MALEATE
     Dosage: UNK, QD
  191. DOMPERIDONE MALEATE [Suspect]
     Active Substance: DOMPERIDONE MALEATE
     Dosage: 2 DF, Q12H
  192. AZITHROMYCIN [Suspect]
     Active Substance: AZITHROMYCIN
     Indication: Product used for unknown indication
     Dosage: 2 DF, QD
     Route: 065
  193. AZITHROMYCIN [Suspect]
     Active Substance: AZITHROMYCIN
     Indication: Lung disorder
     Dosage: 250 MG, QD
     Route: 065
  194. AZITHROMYCIN [Suspect]
     Active Substance: AZITHROMYCIN
     Indication: Pulmonary fibrosis
     Dosage: UNK UNK, QD
     Route: 065
  195. AZITHROMYCIN [Suspect]
     Active Substance: AZITHROMYCIN
     Indication: Arteriosclerosis coronary artery
     Dosage: 250 MG (1 DF), EVERY 12 HOURS
     Route: 065
  196. AZITHROMYCIN [Suspect]
     Active Substance: AZITHROMYCIN
     Indication: Productive cough
     Dosage: 1 DF, QD
     Route: 065
  197. AZITHROMYCIN [Suspect]
     Active Substance: AZITHROMYCIN
     Indication: Pulmonary vasculitis
     Dosage: 1 DF, QD
     Route: 065
  198. AZITHROMYCIN [Suspect]
     Active Substance: AZITHROMYCIN
     Indication: Dyspnoea
     Dosage: 2 DF
  199. AZITHROMYCIN [Suspect]
     Active Substance: AZITHROMYCIN
     Indication: Mite allergy
     Dosage: 2 DF
  200. AZITHROMYCIN [Suspect]
     Active Substance: AZITHROMYCIN
     Indication: Wheezing
     Dosage: 250 MG, QD
  201. AZITHROMYCIN [Suspect]
     Active Substance: AZITHROMYCIN
     Indication: Obstructive airways disorder
     Dosage: 250 MG, QD
  202. AZITHROMYCIN [Suspect]
     Active Substance: AZITHROMYCIN
     Indication: Antineutrophil cytoplasmic antibody positive
  203. AZITHROMYCIN [Suspect]
     Active Substance: AZITHROMYCIN
     Indication: Forced expiratory volume decreased
  204. AZITHROMYCIN [Suspect]
     Active Substance: AZITHROMYCIN
     Indication: Thrombosis
  205. AZITHROMYCIN [Suspect]
     Active Substance: AZITHROMYCIN
     Indication: Nodule
  206. AZITHROMYCIN [Suspect]
     Active Substance: AZITHROMYCIN
     Indication: Normochromic normocytic anaemia
  207. AZITHROMYCIN [Suspect]
     Active Substance: AZITHROMYCIN
     Indication: Neurological symptom
  208. AZITHROMYCIN [Suspect]
     Active Substance: AZITHROMYCIN
     Indication: Hypothyroidism
  209. AZITHROMYCIN [Suspect]
     Active Substance: AZITHROMYCIN
     Indication: Eosinophilic granulomatosis with polyangiitis
  210. AZITHROMYCIN [Suspect]
     Active Substance: AZITHROMYCIN
     Indication: Pulmonary embolism
  211. AZITHROMYCIN [Suspect]
     Active Substance: AZITHROMYCIN
     Indication: Arteriosclerosis
  212. AZITHROMYCIN [Suspect]
     Active Substance: AZITHROMYCIN
     Indication: Loss of personal independence in daily activities
  213. AZITHROMYCIN [Suspect]
     Active Substance: AZITHROMYCIN
     Indication: Mycotic allergy
  214. AZITHROMYCIN [Suspect]
     Active Substance: AZITHROMYCIN
     Indication: Conjunctivitis allergic
  215. AZITHROMYCIN [Suspect]
     Active Substance: AZITHROMYCIN
     Indication: Anxiety
  216. AZITHROMYCIN [Suspect]
     Active Substance: AZITHROMYCIN
     Indication: Full blood count abnormal
  217. AZITHROMYCIN [Suspect]
     Active Substance: AZITHROMYCIN
     Indication: Therapeutic product effect incomplete
  218. AZITHROMYCIN [Suspect]
     Active Substance: AZITHROMYCIN
     Indication: Pulmonary embolism
  219. MONTELUKAST SODIUM [Suspect]
     Active Substance: MONTELUKAST\MONTELUKAST SODIUM
     Indication: Asthma
     Dosage: UNK
     Route: 065
  220. FINASTERIDE\TAMSULOSIN [Suspect]
     Active Substance: FINASTERIDE\TAMSULOSIN
     Dosage: UNK
  221. AMOXICILLIN\CLAVULANATE POTASSIUM [Suspect]
     Active Substance: AMOXICILLIN\CLAVULANATE POTASSIUM
     Indication: Product used for unknown indication
     Dosage: UNK
  222. ESCITALOPRAM OXALATE [Suspect]
     Active Substance: ESCITALOPRAM OXALATE
     Indication: Product used for unknown indication
     Dosage: UNK
  223. DILTIAZEM HYDROCHLORIDE [Suspect]
     Active Substance: DILTIAZEM HYDROCHLORIDE
     Indication: Product used for unknown indication
     Dosage: 120 MG
  224. SENNA LEAF [Suspect]
     Active Substance: SENNA LEAF
     Indication: Product used for unknown indication
     Dosage: UNK
     Route: 048
  225. DOXAZOSIN MESYLATE [Suspect]
     Active Substance: DOXAZOSIN MESYLATE
     Indication: Product used for unknown indication
     Dosage: UNK

REACTIONS (3)
  - Arteriosclerosis coronary artery [Fatal]
  - Anxiety [Fatal]
  - Arteriosclerosis [Unknown]
